FAERS Safety Report 9310865 (Version 2)
Quarter: 2013Q1

REPORT INFORMATION
  Report Type: Spontaneous
  Country: US (occurrence: None)
  Receive Date: 20130208
  Receipt Date: 20130308
  Transmission Date: 20140127
  Serious: No
  Sender: FDA-Public Use
  Company Number: JPI-P-022301

PATIENT
  Age: 71 Year
  Sex: Male
  Weight: 102.06 kg

DRUGS (25)
  1. XYREM [Suspect]
     Indication: CATAPLEXY
     Dosage: 4.5 GM (2.25 GM, 2 IN 1 D),ORAL
     Route: 048
     Dates: start: 20120523, end: 2012
  2. SILDENAFIL CITRATE [Concomitant]
  3. SIMVASTATIN [Concomitant]
  4. FUROSEMIDE [Concomitant]
  5. POTASSIUM CHLORIDE [Concomitant]
  6. HYDROXYZINE [Concomitant]
  7. FLUOXETINE [Concomitant]
  8. ACETYL SALICYLIC ACID [Concomitant]
  9. MODAFINIL [Concomitant]
  10. BUPROPION HYDROCHLORIDE [Concomitant]
  11. LISINOPRIL [Concomitant]
  12. CARVEDILOL [Concomitant]
  13. CORITSONE CREAM [Concomitant]
  14. AMMONIUM LACTATE CREAM (CREAM) [Concomitant]
  15. GRAPE SEED EXTRACT [Concomitant]
  16. FISH OIL [Concomitant]
  17. VITAMIN E [Concomitant]
  18. DEHYDROEPIANDROSTERONE [Concomitant]
  19. L-ARGININE [Concomitant]
  20. MEN^S VITAPAK (MULTIVITAMINS) [Concomitant]
  21. SUBLINGUAL VITAMIN B12 [Concomitant]
  22. VITAMIN B100 [Concomitant]
  23. VITAMIN D3 [Concomitant]
  24. CHELATED MANGANESE [Concomitant]
  25. COQ-10 (CALCIUM/VITAMIN D CLASS) [Concomitant]

REACTIONS (16)
  - Abnormal dreams [None]
  - Abnormal sleep-related event [None]
  - No therapeutic response [None]
  - Somnolence [None]
  - Dizziness [None]
  - Balance disorder [None]
  - Incorrect dose administered [None]
  - Insomnia [None]
  - Initial insomnia [None]
  - Sleep disorder [None]
  - Weight decreased [None]
  - Vomiting [None]
  - Asthenia [None]
  - Wrong technique in drug usage process [None]
  - Fatigue [None]
  - Product quality issue [None]
